FAERS Safety Report 7889110-4 (Version None)
Quarter: 2011Q4

REPORT INFORMATION
  Report Type: 
  Country: None (occurrence: None)
  Receive Date: 20111101
  Receipt Date: 20111020
  Transmission Date: 20120403
  Serious: Yes (Other)
  Sender: FDA-Public Use
  Company Number: DSA_48035_2011

PATIENT

DRUGS (2)
  1. WELLBUTRIN [Suspect]
     Indication: PRODUCT USED FOR UNKNOWN INDICATION
     Dosage: 150 MG OR 300 MG PER DAY
  2. NEUROLEPTICS [Concomitant]

REACTIONS (1)
  - LOSS OF CONSCIOUSNESS [None]
